FAERS Safety Report 7394215-0 (Version None)
Quarter: 2011Q2

REPORT INFORMATION
  Report Type: 
  Country: None (occurrence: None)
  Receive Date: 20110405
  Receipt Date: 20110221
  Transmission Date: 20111010
  Serious: Yes (Other)
  Sender: FDA-Public Use
  Company Number: US-BAYER-2010-008441

PATIENT
  Sex: Female
  Weight: 67.12 kg

DRUGS (11)
  1. ALPRAZOLAM [Concomitant]
  2. XANAX [Concomitant]
  3. YAZ [Suspect]
     Indication: ORAL CONTRACEPTION
     Dosage: UNK
     Dates: start: 20080101, end: 20100101
  4. VICODIN [Concomitant]
  5. PANTOPRAZOLE [Concomitant]
  6. UNCODEABLE ^UNCLASSIFIABLE^ [Concomitant]
  7. DEPAKOTE [Concomitant]
  8. ZOLOFT [Concomitant]
  9. YAZ [Suspect]
     Indication: PREMENSTRUAL SYNDROME
  10. PROTONIX [Concomitant]
  11. ALLEGRA [Concomitant]

REACTIONS (3)
  - CHOLELITHIASIS [None]
  - GALLBLADDER DISORDER [None]
  - CHOLECYSTITIS CHRONIC [None]
